FAERS Safety Report 17621986 (Version 3)
Quarter: 2020Q2

REPORT INFORMATION
  Report Type: Report from Study
  Country: US (occurrence: US)
  Receive Date: 20200403
  Receipt Date: 20200420
  Transmission Date: 20200713
  Serious: Yes (Hospitalization, Other)
  Sender: FDA-Public Use
  Company Number: US-VIIV HEALTHCARE LIMITED-US2020GSK058128

PATIENT
  Age: 18 Year
  Sex: Female
  Weight: 95.7 kg

DRUGS (14)
  1. IBUPROFEN. [Concomitant]
     Active Substance: IBUPROFEN
     Dosage: 1 DF, PRN
  2. LOVENOX [Concomitant]
     Active Substance: ENOXAPARIN SODIUM
     Dosage: 40 MG, BID
     Route: 058
  3. VITAMIN D2 [Concomitant]
     Active Substance: ERGOCALCIFEROL
     Dosage: 1 DF, QD
  4. EMTRICITABINE+TENOFOVIR ALAFENAMIDE [Suspect]
     Active Substance: EMTRICITABINE\TENOFOVIR ALAFENAMIDE FUMARATE
     Indication: HIV INFECTION
     Dosage: 200 MG, QD
     Route: 048
     Dates: start: 20191219
  5. SODIUM CHLORIDE 0.9% BOLUS [Concomitant]
     Dosage: 100 ML/HOURUNK
     Route: 042
  6. ZOSYN [Concomitant]
     Active Substance: PIPERACILLIN SODIUM\TAZOBACTAM SODIUM
     Dosage: 3.375 G, QID
  7. INDINAVIR [Concomitant]
     Active Substance: INDINAVIR
  8. KEFLEX [Concomitant]
     Active Substance: CEPHALEXIN
     Dosage: 1 DF, QID
  9. AQUAPHOR TOPICAL (PETROLATUM) [Concomitant]
     Dosage: UNK, PRN
  10. ATAZANAVIR. [Concomitant]
     Active Substance: ATAZANAVIR
  11. ZYRTEC [Concomitant]
     Active Substance: CETIRIZINE HYDROCHLORIDE
     Dosage: 1 DF, QD
  12. DOLUTEGRAVIR [Suspect]
     Active Substance: DOLUTEGRAVIR
     Indication: HIV INFECTION
     Dosage: 50 MG, QD
     Route: 048
     Dates: start: 20191219
  13. RILPIVIRINE [Suspect]
     Active Substance: RILPIVIRINE
     Indication: HIV INFECTION
     Dosage: 25 MG, QD
     Route: 048
     Dates: start: 20191219
  14. DOCOSANOL [Concomitant]
     Active Substance: DOCOSANOL
     Dosage: 1 DF, QD

REACTIONS (1)
  - Nephrolithiasis [Recovering/Resolving]

NARRATIVE: CASE EVENT DATE: 20200320
